FAERS Safety Report 25096848 (Version 1)
Quarter: 2025Q1

REPORT INFORMATION
  Report Type: Spontaneous
  Country: US (occurrence: US)
  Receive Date: 20250319
  Receipt Date: 20250319
  Transmission Date: 20250409
  Serious: No
  Sender: EISAI
  Company Number: US-Eisai-EC-2025-184965

PATIENT
  Sex: Female

DRUGS (3)
  1. LEQEMBI [Suspect]
     Active Substance: LECANEMAB-IRMB
     Indication: Product used for unknown indication
  2. PROZAC [Suspect]
     Active Substance: FLUOXETINE HYDROCHLORIDE
     Indication: Product used for unknown indication
  3. PROZAC [Suspect]
     Active Substance: FLUOXETINE HYDROCHLORIDE

REACTIONS (1)
  - Tinnitus [Unknown]

NARRATIVE: CASE EVENT DATE: 20250226
